FAERS Safety Report 8959143 (Version 2)
Quarter: 2013Q2

REPORT INFORMATION
  Report Type: Spontaneous
  Country: US (occurrence: US)
  Receive Date: 20121212
  Receipt Date: 20130508
  Transmission Date: 20140414
  Serious: No
  Sender: FDA-Public Use
  Company Number: US-009507513-1212USA004589

PATIENT
  Age: 4 Year
  Sex: Female
  Weight: 17.69 kg

DRUGS (2)
  1. CLARITIN ORAL SOLUTION [Suspect]
     Indication: NASOPHARYNGITIS
     Dosage: UNK, ONCE
     Route: 048
     Dates: start: 20121128
  2. CLARITIN ORAL SOLUTION [Suspect]
     Indication: MEDICAL OBSERVATION
     Dosage: 5 MG, Q12H
     Route: 048
     Dates: start: 2012

REACTIONS (4)
  - Nasal dryness [Recovered/Resolved]
  - Overdose [Unknown]
  - Drug ineffective [Unknown]
  - Off label use [Unknown]
